FAERS Safety Report 9718204 (Version 1)
Quarter: 2013Q4

REPORT INFORMATION
  Report Type: Spontaneous
  Country: US (occurrence: None)
  Receive Date: 20131125
  Receipt Date: 20131125
  Transmission Date: 20140711
  Serious: Yes (Other)
  Sender: FDA-Public Use
  Company Number: 001633400A

PATIENT
  Age: 35 Year
  Sex: Female

DRUGS (2)
  1. MB* ANTIOXIDANT DAY CREME SPF 20 [Suspect]
     Dosage: ONCE DAILY DERMAL
     Dates: start: 20130830, end: 20130831
  2. MB* SKIN BRIGHTENING DECOLLETE+NECK TREATMENT SPF 15 [Suspect]
     Dosage: ONCE DAILY DERMAL
     Dates: start: 20130830, end: 20130831

REACTIONS (4)
  - Pruritus [None]
  - Urticaria [None]
  - Swelling face [None]
  - Erythema [None]
